FAERS Safety Report 12959507 (Version 1)
Quarter: 2016Q4

REPORT INFORMATION
  Report Type: Spontaneous
  Country: US (occurrence: US)
  Receive Date: 20161118
  Receipt Date: 20161118
  Transmission Date: 20170207
  Serious: Yes (Disabling)
  Sender: FDA-Public Use
  Company Number: None

PATIENT
  Age: 53 Year
  Sex: Female
  Weight: 51.75 kg

DRUGS (1)
  1. GADOLINUM [Suspect]
     Active Substance: GADOLINIUM
     Indication: INVESTIGATION
     Dosage: INTRAVENOUS ANNUALLY OR MORE
     Route: 042

REACTIONS (7)
  - Malaise [None]
  - Migraine [None]
  - Back pain [None]
  - Asthenia [None]
  - Pain [None]
  - Joint swelling [None]
  - Neck pain [None]
